FAERS Safety Report 8223563-7 (Version None)
Quarter: 2012Q1

REPORT INFORMATION
  Report Type: 
  Country: None (occurrence: None)
  Receive Date: 20120321
  Receipt Date: 20120316
  Transmission Date: 20120608
  Serious: No
  Sender: FDA-Public Use
  Company Number: US-PFIZER INC-2012070069

PATIENT
  Sex: Female
  Weight: 59.9 kg

DRUGS (4)
  1. LISINOPRIL [Concomitant]
     Indication: HYPERTENSION
     Dosage: UNK
  2. PROTONIX [Concomitant]
     Indication: GASTROOESOPHAGEAL REFLUX DISEASE
     Dosage: UNK
  3. EFFEXOR XR [Suspect]
     Indication: ANXIETY
     Dosage: ONE 75MG ONCE IN MORNING AND TWO CAPSULES OF 75MG ONCE IN THE EVENINGMG
     Route: 048
     Dates: start: 20000101, end: 20120227
  4. PREMARIN [Concomitant]
     Dosage: UNK

REACTIONS (2)
  - NAUSEA [None]
  - DIZZINESS [None]
